FAERS Safety Report 13640863 (Version 1)
Quarter: 2017Q2

REPORT INFORMATION
  Report Type: Spontaneous
  Country: US (occurrence: US)
  Receive Date: 20170612
  Receipt Date: 20170612
  Transmission Date: 20170830
  Serious: No
  Sender: FDA-Public Use
  Company Number: US-TEVA-750364ACC

PATIENT
  Age: 71 Year
  Sex: Male

DRUGS (3)
  1. MYRBETRIQ [Interacting]
     Active Substance: MIRABEGRON
     Indication: HYPERTONIC BLADDER
     Dosage: 25 MILLIGRAM DAILY;
  2. TESTOSTERONE. [Suspect]
     Active Substance: TESTOSTERONE
     Route: 030
  3. MYRBETRIQ [Interacting]
     Active Substance: MIRABEGRON
     Dosage: 50 MILLIGRAM DAILY;

REACTIONS (6)
  - Anorgasmia [Unknown]
  - Drug interaction [Unknown]
  - Erectile dysfunction [Unknown]
  - Pallor [Unknown]
  - Haemoglobin decreased [Unknown]
  - Libido decreased [Unknown]
